FAERS Safety Report 8160157-6 (Version None)
Quarter: 2012Q1

REPORT INFORMATION
  Report Type: 
  Country: None (occurrence: None)
  Receive Date: 20120223
  Receipt Date: 20120220
  Transmission Date: 20120608
  Serious: Yes (Death, Hospitalization)
  Sender: FDA-Public Use
  Company Number: CH-ELI_LILLY_AND_COMPANY-CH98015275A

PATIENT
  Age: 48 Year
  Sex: Female

DRUGS (3)
  1. GEMZAR [Suspect]
     Indication: NON-SMALL CELL LUNG CANCER
     Dosage: 1000 MG/M2, WEEKLY (1/W)
     Route: 042
     Dates: start: 19970721, end: 19971027
  2. MORPHINE [Concomitant]
     Indication: BONE PAIN
     Dosage: 200 MG, 2/D
  3. NAPROXEN [Concomitant]
     Indication: METASTATIC PAIN
     Dosage: 650 MG, UNKNOWN

REACTIONS (13)
  - ABDOMINAL PAIN UPPER [None]
  - JAUNDICE [None]
  - CONFUSIONAL STATE [None]
  - GALLBLADDER DISORDER [None]
  - BLOOD BILIRUBIN INCREASED [None]
  - HEPATIC FAILURE [None]
  - PLATELET COUNT DECREASED [None]
  - ASCITES [None]
  - NAUSEA [None]
  - VENOOCCLUSIVE LIVER DISEASE [None]
  - VOMITING [None]
  - COMA HEPATIC [None]
  - ASPARTATE AMINOTRANSFERASE INCREASED [None]
